FAERS Safety Report 8528575-1 (Version None)
Quarter: 2012Q3

REPORT INFORMATION
  Report Type: 
  Country: None (occurrence: None)
  Receive Date: 20120723
  Receipt Date: 20120713
  Transmission Date: 20120928
  Serious: Yes (Hospitalization)
  Sender: FDA-Public Use
  Company Number: US-BIOGENIDEC-2006BI018893

PATIENT
  Sex: Female

DRUGS (4)
  1. AVONEX [Suspect]
     Route: 030
     Dates: start: 20061128
  2. AVONEX [Suspect]
     Route: 030
     Dates: start: 20120501
  3. NEURONTIN [Concomitant]
     Indication: PAIN
  4. AVONEX [Suspect]
     Indication: MULTIPLE SCLEROSIS
     Route: 030
     Dates: start: 19980801, end: 20041220

REACTIONS (26)
  - HYPOAESTHESIA [None]
  - DEPRESSION [None]
  - MULTIPLE SCLEROSIS RELAPSE [None]
  - INTERVERTEBRAL DISC PROTRUSION [None]
  - LEUKAEMIA [None]
  - PETECHIAE [None]
  - INTERVERTEBRAL DISC COMPRESSION [None]
  - NERVOUS SYSTEM DISORDER [None]
  - UTERINE DISORDER [None]
  - SOMNOLENCE [None]
  - SYNCOPE [None]
  - MEMORY IMPAIRMENT [None]
  - VITAMIN B12 DECREASED [None]
  - WEIGHT INCREASED [None]
  - EYE PAIN [None]
  - CEREBROVASCULAR ACCIDENT [None]
  - MENORRHAGIA [None]
  - ASTHENIA [None]
  - BACTERIAL SEPSIS [None]
  - CARDIAC NEOPLASM UNSPECIFIED [None]
  - MEDICAL DEVICE COMPLICATION [None]
  - CORONARY ARTERY THROMBOSIS [None]
  - MYOCARDIAL CALCIFICATION [None]
  - HEADACHE [None]
  - THROMBOTIC THROMBOCYTOPENIC PURPURA [None]
  - LOGORRHOEA [None]
